FAERS Safety Report 13995979 (Version 1)
Quarter: 2017Q3

REPORT INFORMATION
  Report Type: Spontaneous
  Country: US (occurrence: US)
  Receive Date: 20170921
  Receipt Date: 20170921
  Transmission Date: 20171128
  Serious: No
  Sender: FDA-Public Use
  Company Number: US-AMARIN PHARMA, INC.-2017AMR000183

PATIENT
  Sex: Female
  Weight: 72.64 kg

DRUGS (3)
  1. VASCEPA [Suspect]
     Active Substance: ICOSAPENT ETHYL
     Indication: BLOOD TRIGLYCERIDES
     Route: 048
  2. OMEGA XL FROM NEW ZEALAND [Concomitant]
     Indication: PRODUCT USED FOR UNKNOWN INDICATION
  3. VASCEPA [Suspect]
     Active Substance: ICOSAPENT ETHYL
     Route: 048
     Dates: start: 20170703, end: 20170703

REACTIONS (3)
  - Dysgeusia [Unknown]
  - Eructation [Unknown]
  - Off label use [Unknown]
